FAERS Safety Report 6199072-6 (Version None)
Quarter: 2009Q2

REPORT INFORMATION
  Report Type: 
  Country: None (occurrence: None)
  Receive Date: 20090522
  Receipt Date: 20090515
  Transmission Date: 20091009
  Serious: Yes (Hospitalization)
  Sender: FDA-Public Use
  Company Number: US-ELI_LILLY_AND_COMPANY-US200905003245

PATIENT
  Age: 56 Year
  Sex: Female

DRUGS (18)
  1. FORTEO [Suspect]
     Dates: start: 20070301, end: 20081001
  2. ALBUTEROL [Concomitant]
  3. ALENDRONAT [Concomitant]
     Indication: OSTEOPOROSIS
  4. ASPIRIN [Concomitant]
  5. CALCIUM WITH VITAMIN D [Concomitant]
  6. PLAVIX [Concomitant]
  7. VIOKASE [Concomitant]
  8. VITAMIN B-12 [Concomitant]
  9. VITAMIN D2 [Concomitant]
  10. GUAIFENESIN [Concomitant]
  11. METOPROLOL SUCCINATE [Concomitant]
  12. MOMETASONE FUROATE [Concomitant]
  13. MORPHINE SULFATE [Concomitant]
     Indication: PAIN
  14. OXYCODON [Concomitant]
     Indication: PAIN
  15. NITROGLYCERIN [Concomitant]
  16. PROTONIX [Concomitant]
  17. PANTOPRAZOLE SODIUM [Concomitant]
  18. PRAVASTATIN [Concomitant]

REACTIONS (13)
  - BACK PAIN [None]
  - BODY HEIGHT DECREASED [None]
  - BONE DENSITY DECREASED [None]
  - COMPRESSION FRACTURE [None]
  - DYSSTASIA [None]
  - FEELING ABNORMAL [None]
  - FEMORAL ARTERY ANEURYSM [None]
  - LUMBAR VERTEBRAL FRACTURE [None]
  - PAIN [None]
  - PAIN IN EXTREMITY [None]
  - PLEURAL EFFUSION [None]
  - PNEUMONIA [None]
  - THORACIC VERTEBRAL FRACTURE [None]
